FAERS Safety Report 9168146 (Version 2)
Quarter: 2013Q2

REPORT INFORMATION
  Report Type: Spontaneous
  Country: US (occurrence: None)
  Receive Date: 20130225
  Receipt Date: 20130422
  Transmission Date: 20140414
  Serious: Yes (Other)
  Sender: FDA-Public Use
  Company Number: 2013034859

PATIENT
  Age: 3 Year
  Sex: Male

DRUGS (2)
  1. IVIG (IMMUNE GLOBULIN INTRAVENOUS (HUMAN) 10% LIQUID) [Suspect]
     Indication: KAWASAKI^S DISEASE
     Dosage: 2 G/KG, INTRAVENOUS (NOT OTHERWISE SPECIFIED)?
     Route: 042
  2. ASPIRIN (ACETYLSALICYLIC ACID) [Suspect]
     Indication: KAWASAKI^S DISEASE
     Route: 042

REACTIONS (14)
  - Drug ineffective [None]
  - Arthritis [None]
  - Pyrexia [None]
  - Irritability [None]
  - Oropharyngeal pain [None]
  - Nuchal rigidity [None]
  - Chapped lips [None]
  - Lip swelling [None]
  - Pharyngeal erythema [None]
  - Lymphadenopathy [None]
  - Rash [None]
  - Skin exfoliation [None]
  - Drug ineffective for unapproved indication [None]
  - Coronary artery aneurysm [None]
